FAERS Safety Report 18810256 (Version 1)
Quarter: 2021Q1

REPORT INFORMATION
  Report Type: Other
  Country: US (occurrence: US)
  Receive Date: 20210129
  Receipt Date: 20210129
  Transmission Date: 20210419
  Serious: Yes (Other)
  Sender: FDA-Public Use
  Company Number: US-ACI HEALTHCARE LIMITED-2106044

PATIENT
  Age: 85 Year
  Sex: Male

DRUGS (3)
  1. GABAPENTIN. [Suspect]
     Active Substance: GABAPENTIN
     Indication: PRODUCT USED FOR UNKNOWN INDICATION
     Route: 065
  2. BUMETANIDE. [Suspect]
     Active Substance: BUMETANIDE
     Route: 065
  3. METOLAZONE. [Suspect]
     Active Substance: METOLAZONE
     Route: 065

REACTIONS (4)
  - Diastolic dysfunction [Recovered/Resolved]
  - Oedema peripheral [Recovered/Resolved]
  - Acute kidney injury [Recovered/Resolved]
  - Weight increased [Recovered/Resolved]
